FAERS Safety Report 8738972 (Version 2)
Quarter: 2012Q4

REPORT INFORMATION
  Report Type: 
  Country: US (occurrence: US)
  Receive Date: 20120823
  Receipt Date: 20121004
  Transmission Date: 20130627
  Serious: Yes (Other)
  Sender: FDA-Public Use
  Company Number: PHEH2012US016238

PATIENT
  Sex: Female

DRUGS (2)
  1. VIVELLE DOT [Suspect]
     Indication: HYSTERECTOMY
     Dosage: 0.1 mg, twice a week
     Route: 062
  2. SOMA [Concomitant]
     Indication: MUSCLE SPASMS
     Dosage: 350 mg, QD
     Route: 048

REACTIONS (6)
  - Neoplasm malignant [Unknown]
  - Head injury [Unknown]
  - Amnesia [Unknown]
  - Dysmenorrhoea [Unknown]
  - Condition aggravated [Unknown]
  - Movement disorder [Unknown]
